FAERS Safety Report 5136430-2 (Version None)
Quarter: 2006Q4

REPORT INFORMATION
  Report Type: 
  Country: None (occurrence: None)
  Receive Date: 20061027
  Receipt Date: 20051115
  Transmission Date: 20070319
  Serious: No
  Sender: FDA-Public Use
  Company Number: US-BRISTOL-MYERS SQUIBB COMPANY-13181995

PATIENT
  Age: 46 Year
  Sex: Female

DRUGS (5)
  1. KENALOG-40 [Suspect]
     Route: 030
     Dates: start: 20050831
  2. SOMA [Concomitant]
  3. PERCOCET [Concomitant]
  4. EVISTA [Concomitant]
  5. EFFEXOR [Concomitant]

REACTIONS (2)
  - ATROPHY [None]
  - INJECTION SITE PAIN [None]
